FAERS Safety Report 6335234-2 (Version None)
Quarter: 2009Q3

REPORT INFORMATION
  Report Type: 
  Country: None (occurrence: None)
  Receive Date: 20090827
  Receipt Date: 20090812
  Transmission Date: 20100115
  Serious: Yes (Hospitalization, Other)
  Sender: FDA-Public Use
  Company Number: AUR-APL-2009-00401

PATIENT
  Age: 51 Year
  Sex: Female
  Weight: 102.96 kg

DRUGS (13)
  1. RISPERIDONE [Suspect]
     Indication: SCHIZOAFFECTIVE DISORDER
     Dosage: 3MG - BID - ORAL
  2. AMITRIPTYLINE [Suspect]
     Indication: DEPRESSION
     Dosage: 150MG - DAILY - ORAL
     Route: 048
     Dates: start: 20051101
  3. FUROSEMIDE [Suspect]
     Indication: JOINT SWELLING
     Dosage: 20MG- ORAL
     Route: 048
     Dates: start: 20060901, end: 20090709
  4. IBUPROFEN [Suspect]
     Indication: PAIN
     Dosage: 400 MG- TID- ORAL
     Route: 048
  5. DIHYDROCODEINE BITARTRATE INJ [Concomitant]
  6. FYBOGEL [Concomitant]
  7. LACTULOSE [Concomitant]
  8. LANSOPRAZOLE [Concomitant]
  9. MAXEPA [Concomitant]
  10. NULYTELY [Concomitant]
  11. PARACETAMOL [Concomitant]
  12. VALPROATE SODIUM [Concomitant]
  13. VALPROATE SODIUM [Concomitant]

REACTIONS (2)
  - BLOOD SODIUM DECREASED [None]
  - BURNING SENSATION [None]
